FAERS Safety Report 23994303 (Version 1)
Quarter: 2024Q2

REPORT INFORMATION
  Report Type: Spontaneous
  Country: US (occurrence: US)
  Receive Date: 20240620
  Receipt Date: 20240620
  Transmission Date: 20240716
  Serious: Yes (Other)
  Sender: FDA-Public Use
  Company Number: US-MYOVANT SCIENCES GMBH-2024MYSCI0600517

PATIENT
  Sex: Male

DRUGS (1)
  1. ORGOVYX [Suspect]
     Active Substance: RELUGOLIX
     Indication: Product used for unknown indication
     Dosage: UNK
     Route: 065
     Dates: end: 202405

REACTIONS (8)
  - Diabetes mellitus [Unknown]
  - Hot flush [Unknown]
  - Fatigue [Unknown]
  - Constipation [Unknown]
  - Myalgia [Unknown]
  - Arthralgia [Unknown]
  - Haemoglobin decreased [Unknown]
  - Pain in extremity [Unknown]
